FAERS Safety Report 7816464-7 (Version None)
Quarter: 2011Q4

REPORT INFORMATION
  Report Type: 
  Country: None (occurrence: None)
  Receive Date: 20111017
  Receipt Date: 20111005
  Transmission Date: 20120403
  Serious: Yes (Death, Hospitalization)
  Sender: FDA-Public Use
  Company Number: CA-JNJFOC-20111005688

PATIENT
  Sex: Female
  Weight: 36.02 kg

DRUGS (1)
  1. REMICADE [Suspect]
     Indication: COLITIS ULCERATIVE
     Route: 042
     Dates: start: 20060201, end: 20110816

REACTIONS (8)
  - TACHYCARDIA [None]
  - LUNG INFECTION [None]
  - CARDIAC ARREST [None]
  - HYPOGLYCAEMIA [None]
  - KETOACIDOSIS [None]
  - RENAL FAILURE ACUTE [None]
  - MULTI-ORGAN FAILURE [None]
  - CARDIOGENIC SHOCK [None]
